FAERS Safety Report 5140934-6 (Version None)
Quarter: 2006Q4

REPORT INFORMATION
  Report Type: 
  Country: None (occurrence: None)
  Receive Date: 20061025
  Receipt Date: 20061025
  Transmission Date: 20070319
  Serious: Yes (Hospitalization)
  Sender: FDA-Public Use
  Company Number: None

PATIENT
  Age: 63 Year
  Sex: Male
  Weight: 95.2554 kg

DRUGS (4)
  1. METOPROLOL TARTRATE [Suspect]
     Indication: HYPERTENSION
     Dosage: 50MG PO BID
     Route: 048
  2. FUROSEMIDE [Suspect]
     Dosage: 120MG  PO  BID
     Route: 048
  3. FINASTERIDE [Suspect]
     Dosage: 5 MG PO  QD
     Route: 048
  4. TERAZOSIN HCL [Suspect]
     Dosage: 5 MG PO QD
     Route: 048

REACTIONS (4)
  - ANKLE FRACTURE [None]
  - FALL [None]
  - HYPOTENSION [None]
  - PAIN IN EXTREMITY [None]
